FAERS Safety Report 11838446 (Version 3)
Quarter: 2016Q3

REPORT INFORMATION
  Report Type: Report from Study
  Country: US (occurrence: US)
  Receive Date: 20151215
  Receipt Date: 20160921
  Transmission Date: 20161109
  Serious: Yes (Other)
  Sender: FDA-Public Use
  Company Number: US-ASTRAZENECA-2015SF22576

PATIENT
  Sex: Female
  Weight: 61.2 kg

DRUGS (2)
  1. LYNPARZA [Suspect]
     Active Substance: OLAPARIB
     Indication: OVARIAN CANCER
     Dosage: 50 MG TAKING 8 CAPSULES IN THE MORNING AND 8 CAPSULES IN THE EVENING
     Route: 048
     Dates: start: 20151116
  2. LYNPARZA [Suspect]
     Active Substance: OLAPARIB
     Indication: OVARIAN CANCER
     Route: 048
     Dates: start: 20151120

REACTIONS (6)
  - Malignant neoplasm progression [Unknown]
  - Arthralgia [Not Recovered/Not Resolved]
  - Back pain [Not Recovered/Not Resolved]
  - Cystitis [Not Recovered/Not Resolved]
  - Extrasystoles [Unknown]
  - Nausea [Unknown]
